FAERS Safety Report 9025316 (Version 3)
Quarter: 2013Q4

REPORT INFORMATION
  Report Type: Spontaneous
  Country: US (occurrence: US)
  Receive Date: 20130122
  Receipt Date: 20131107
  Transmission Date: 20140711
  Serious: Yes (Death, Hospitalization)
  Sender: FDA-Public Use
  Company Number: US-B.I. PHARMACEUTICALS,INC./RIDGEFIELD-2013-BI-00932BP

PATIENT
  Age: 81 Year
  Sex: Male
  Weight: 102.06 kg

DRUGS (14)
  1. PRADAXA [Suspect]
     Dates: start: 201010, end: 20110104
  2. TYLENOL [Concomitant]
  3. IRON [Concomitant]
  4. PROCRIT [Concomitant]
  5. BENADRYL [Concomitant]
  6. ALLOPURINOL [Concomitant]
  7. COREG [Concomitant]
     Dates: start: 2003
  8. REVATIO [Concomitant]
  9. LASIX [Concomitant]
  10. ZAROXOLYN [Concomitant]
  11. SPIRONOLACTONE [Concomitant]
  12. LEXAPRO [Concomitant]
  13. TRAMADOL HCL [Concomitant]
  14. SYMBICORT [Concomitant]

REACTIONS (4)
  - Renal failure acute [Fatal]
  - Gastrointestinal haemorrhage [Unknown]
  - Epistaxis [Unknown]
  - Rectal haemorrhage [Unknown]
